FAERS Safety Report 8916144 (Version 2)
Quarter: 2013Q1

REPORT INFORMATION
  Report Type: Spontaneous
  Country: US (occurrence: US)
  Receive Date: 20121120
  Receipt Date: 20130213
  Transmission Date: 20140127
  Serious: Yes (Other)
  Sender: FDA-Public Use
  Company Number: US-PERRIGO-12US009859

PATIENT
  Age: 56 Year
  Sex: Female
  Weight: 51.25 kg

DRUGS (3)
  1. ANTIBIOTIC PLUS CRM 809 [Suspect]
     Indication: ACCIDENTAL EXPOSURE TO PRODUCT
     Dosage: FINGERTIP AMOUNT, SINGLE
     Route: 061
     Dates: start: 20121110, end: 20121110
  2. ANTIBIOTIC PLUS CRM 809 [Suspect]
     Dosage: FINGERTIP AMOUNT, SINGLE
     Route: 061
     Dates: start: 20121112, end: 20121112
  3. DIFLUCAN [Suspect]
     Indication: FUNGAL INFECTION
     Dosage: 1 TABLET, SINGLE
     Route: 048
     Dates: start: 20121110, end: 20121110

REACTIONS (5)
  - Hypersensitivity [Recovered/Resolved]
  - Throat tightness [Recovered/Resolved]
  - Swelling face [Unknown]
  - Erythema [Unknown]
  - Accidental exposure to product [Recovering/Resolving]
